FAERS Safety Report 9913106 (Version 1)
Quarter: 2014Q1

REPORT INFORMATION
  Report Type: Spontaneous
  Country: US (occurrence: None)
  Receive Date: 20140218
  Receipt Date: 20140218
  Transmission Date: 20141002
  Serious: Yes (Hospitalization)
  Sender: FDA-Public Use
  Company Number: None

PATIENT
  Age: 38 Year
  Sex: Female
  Weight: 73 kg

DRUGS (5)
  1. VIDAZA [Suspect]
     Route: 042
     Dates: start: 20140131, end: 20140206
  2. VOSAROXIN [Suspect]
     Indication: MYELODYSPLASTIC SYNDROME
     Route: 042
     Dates: start: 20140131
  3. TYLENOL [Concomitant]
  4. ACYCLOVIR [Concomitant]
  5. ETHINYL ESTRADIOL NORETHINDRONE [Concomitant]

REACTIONS (3)
  - Oropharyngeal pain [None]
  - Sinus congestion [None]
  - Febrile neutropenia [None]
